FAERS Safety Report 5808593-4 (Version None)
Quarter: 2008Q3

REPORT INFORMATION
  Report Type: 
  Country: None (occurrence: None)
  Receive Date: 20080714
  Receipt Date: 20080707
  Transmission Date: 20090109
  Serious: Yes (Life-Threatening, Other)
  Sender: FDA-Public Use
  Company Number: US-BAYER-200812377BCC

PATIENT
  Age: 70 Year
  Sex: Female
  Weight: 86 kg

DRUGS (22)
  1. ASPIRIN [Suspect]
     Indication: STENT PLACEMENT
     Dosage: TOTAL DAILY DOSE: 162 MG  UNIT DOSE: 81 MG
     Route: 048
     Dates: start: 20080101, end: 20080301
  2. ASPIRIN [Suspect]
     Route: 048
     Dates: start: 20080309
  3. PLAVIX [Suspect]
     Indication: STENT PLACEMENT
     Route: 048
     Dates: start: 20080309
  4. PLAVIX [Suspect]
     Dosage: TOTAL DAILY DOSE: 75 MG  UNIT DOSE: 75 MG
     Route: 048
     Dates: start: 20080123, end: 20080301
  5. HEPARIN-FRACTION SODIUM [Suspect]
  6. FEXOFENADINE HYDROCHLORIDE [Concomitant]
     Dosage: TOTAL DAILY DOSE: 180 MG
     Route: 048
  7. AMLODIPINE BESYLATE [Concomitant]
  8. NEURONTIN [Concomitant]
  9. ZOCOR [Concomitant]
     Dosage: TOTAL DAILY DOSE: 40 MG
     Route: 048
  10. NEXIUM [Concomitant]
     Dosage: TOTAL DAILY DOSE: 40 MG
     Route: 048
  11. LEVAQUIN [Concomitant]
  12. METOPROLOL TARTRATE [Concomitant]
     Dosage: TOTAL DAILY DOSE: 50 MG
     Route: 048
  13. NORVASC [Concomitant]
  14. DICLOFENAC [Concomitant]
     Dosage: TOTAL DAILY DOSE: 150 MG
  15. JUICE PLUS [Concomitant]
  16. NITROSTAT [Concomitant]
     Dosage: TOTAL DAILY DOSE: 0.3 MG
     Route: 048
  17. DIOVAN HCT [Concomitant]
     Dosage: TOTAL DAILY DOSE: 12.5 MG
  18. OMEGA 3 [Concomitant]
     Dosage: TOTAL DAILY DOSE: 2000 MG
     Route: 048
  19. LORTAB [Concomitant]
  20. TYLENOL [Concomitant]
  21. MORPHINE [Concomitant]
  22. SIMVASTATIN [Concomitant]

REACTIONS (7)
  - ANAEMIA [None]
  - CHEST PAIN [None]
  - DIVERTICULUM INTESTINAL HAEMORRHAGIC [None]
  - FATIGUE [None]
  - GASTROINTESTINAL HAEMORRHAGE [None]
  - OCCULT BLOOD POSITIVE [None]
  - OEDEMA PERIPHERAL [None]
